FAERS Safety Report 6142895-X (Version None)
Quarter: 2009Q2

REPORT INFORMATION
  Report Type: 
  Country: None (occurrence: None)
  Receive Date: 20090403
  Receipt Date: 20090324
  Transmission Date: 20091009
  Serious: Yes (Other)
  Sender: FDA-Public Use
  Company Number: FR-PFIZER INC-2009190988

PATIENT

DRUGS (1)
  1. XALATAN [Suspect]
     Dosage: UNK
     Dates: start: 20030101

REACTIONS (1)
  - INTRAOCULAR MELANOMA [None]
